FAERS Safety Report 18912441 (Version 2)
Quarter: 2021Q1

REPORT INFORMATION
  Report Type: Spontaneous
  Country: IL (occurrence: IL)
  Receive Date: 20210219
  Receipt Date: 20210223
  Transmission Date: 20210420
  Serious: Yes (Death, Hospitalization)
  Sender: FDA-Public Use
  Company Number: IL-CELLTRION INC.-2021IL002018

PATIENT

DRUGS (2)
  1. RITUXIMAB (UNKNOWN) [Suspect]
     Active Substance: RITUXIMAB
     Indication: PEMPHIGUS
     Dosage: 1,000 MG ON DAYS 0 AND 14 (GREATER THAN OR EQUAL TO 1 RITUXIMAB CYCLES)
  2. PREDNISONE. [Concomitant]
     Active Substance: PREDNISONE
     Indication: PEMPHIGUS
     Dosage: HIGH DOSE 0.7 MG/KG

REACTIONS (6)
  - Pseudomonal sepsis [Fatal]
  - Urinary tract infection pseudomonal [Unknown]
  - Hypotension [Unknown]
  - Atrial fibrillation [Unknown]
  - Pneumonia [Unknown]
  - Septic shock [Fatal]
